FAERS Safety Report 5236645-9 (Version None)
Quarter: 2007Q1

REPORT INFORMATION
  Report Type: 
  Country: None (occurrence: None)
  Receive Date: 20070208
  Receipt Date: 20070126
  Transmission Date: 20070707
  Serious: Yes (Other)
  Sender: FDA-Public Use
  Company Number: 2007PV000003

PATIENT
  Age: 70 Year
  Sex: Female
  Weight: 67.586 kg

DRUGS (1)
  1. DEPODUR [Suspect]
     Indication: PROCEDURAL PAIN
     Dosage: 15 MG X1 ED
     Dates: start: 20060126, end: 20060126

REACTIONS (3)
  - LOSS OF CONSCIOUSNESS [None]
  - RESPIRATORY DEPRESSION [None]
  - SOMNOLENCE [None]
